FAERS Safety Report 6198132-3 (Version None)
Quarter: 2009Q2

REPORT INFORMATION
  Report Type: 
  Country: None (occurrence: None)
  Receive Date: 20090521
  Receipt Date: 20090406
  Transmission Date: 20091009
  Serious: Yes (Death)
  Sender: FDA-Public Use
  Company Number: KR-PFIZER INC-2009159094

PATIENT
  Age: 48 Year

DRUGS (52)
  1. BLINDED *PLACEBO [Suspect]
     Indication: ASPERGILLOSIS
     Dosage: UNK
     Route: 042
     Dates: start: 20081209, end: 20090106
  2. BLINDED ANIDULAFUNGIN [Suspect]
     Indication: ASPERGILLOSIS
     Dosage: UNK
     Route: 042
     Dates: start: 20081209, end: 20090106
  3. VORICONAZOLE [Suspect]
     Indication: ASPERGILLOSIS
     Dosage: 339 MG, 2X/DAY
     Dates: start: 20081209, end: 20081210
  4. VORICONAZOLE [Suspect]
     Dosage: 226 MG, 2X/DAY
     Dates: start: 20081210, end: 20081230
  5. VORICONAZOLE [Suspect]
     Dosage: 247.2 MG, 2X/DAY
     Dates: start: 20081230, end: 20090118
  6. FILGRASTIM [Concomitant]
     Dates: start: 20081129, end: 20090106
  7. FILGRASTIM [Concomitant]
     Dates: start: 20081129, end: 20090106
  8. METOCLOPRAMIDE HYDROCHLORIDE [Concomitant]
     Dates: start: 20081202, end: 20090105
  9. METOCLOPRAMIDE HYDROCHLORIDE [Concomitant]
     Dates: start: 20081202, end: 20090105
  10. CHLORPHENIRAMINE MALEATE [Concomitant]
     Dates: start: 20081203, end: 20090116
  11. CHLORPHENIRAMINE MALEATE [Concomitant]
     Dates: start: 20081203, end: 20090116
  12. HYDROCORTISONE [Concomitant]
     Dates: start: 20081203, end: 20090116
  13. HYDROCORTISONE [Concomitant]
     Dates: start: 20081203, end: 20090116
  14. MORPHINE [Concomitant]
     Dates: start: 20081207, end: 20090118
  15. MORPHINE [Concomitant]
     Dates: start: 20081207, end: 20090118
  16. COMBIFLEX [Concomitant]
     Dates: start: 20081214, end: 20090106
  17. COMBIFLEX [Concomitant]
     Dates: start: 20081214, end: 20090106
  18. FUROSEMIDE [Concomitant]
     Dates: start: 20081214, end: 20090114
  19. FUROSEMIDE [Concomitant]
     Dates: start: 20081214, end: 20090114
  20. FAMOTIDINE [Concomitant]
     Dates: start: 20081218, end: 20090118
  21. FAMOTIDINE [Concomitant]
     Dates: start: 20081218, end: 20090118
  22. LEVOFLOXACIN [Concomitant]
     Dates: start: 20090106, end: 20090118
  23. LEVOFLOXACIN [Concomitant]
     Dates: start: 20090106, end: 20090118
  24. MEROPENEM [Concomitant]
     Dates: start: 20081219, end: 20090118
  25. MEROPENEM [Concomitant]
     Dates: start: 20081219, end: 20090118
  26. ALBUMIN HUMAN [Concomitant]
     Dates: start: 20081220, end: 20090115
  27. ALBUMIN HUMAN [Concomitant]
     Dates: start: 20081220, end: 20090115
  28. LINEZOLID [Concomitant]
     Dates: start: 20081222, end: 20090113
  29. LINEZOLID [Concomitant]
     Dates: start: 20081222, end: 20090113
  30. TRANEXAMIC ACID [Concomitant]
     Dates: start: 20081227, end: 20090105
  31. TRANEXAMIC ACID [Concomitant]
     Dates: start: 20081227, end: 20090105
  32. DILTIAZEM [Concomitant]
     Dates: start: 20090103, end: 20090115
  33. DILTIAZEM [Concomitant]
     Dates: start: 20090103, end: 20090115
  34. CALCIUM CARBONATE [Concomitant]
     Route: 048
     Dates: start: 20081126, end: 20090105
  35. CALCIUM CARBONATE [Concomitant]
     Route: 048
     Dates: start: 20081126, end: 20090105
  36. MAGNESIUM OXIDE [Concomitant]
     Route: 048
     Dates: start: 20081008, end: 20090105
  37. MAGNESIUM OXIDE [Concomitant]
     Route: 048
     Dates: start: 20081008, end: 20090105
  38. CENTRUM [Concomitant]
     Route: 048
     Dates: start: 20081121, end: 20090105
  39. CENTRUM [Concomitant]
     Route: 048
     Dates: start: 20081121, end: 20090105
  40. OXYCODONE HCL [Concomitant]
     Route: 048
     Dates: start: 20081219, end: 20090105
  41. OXYCODONE HCL [Concomitant]
     Route: 048
     Dates: start: 20081219, end: 20090105
  42. NYSTATIN [Concomitant]
     Dosage: UNK
     Route: 048
     Dates: start: 20081212, end: 20090105
  43. FENTANYL [Concomitant]
     Dosage: UNK
     Dates: start: 20081120, end: 20090111
  44. POVIDONE-IODINE [Concomitant]
     Dosage: UNK
     Dates: start: 20081202, end: 20090118
  45. CHLORHEXIDINE GLUCONATE [Concomitant]
     Dosage: UNK
     Route: 048
     Dates: start: 20081119, end: 20090118
  46. VASELINE [Concomitant]
     Dosage: UNK
     Dates: start: 20081215, end: 20090118
  47. IPRATROPIUM BROMIDE [Concomitant]
  48. LACTICARE [Concomitant]
     Dosage: UNK
     Dates: start: 20081220, end: 20090118
  49. LABETALOL [Concomitant]
     Dosage: UNK
     Dates: start: 20090108, end: 20090108
  50. ALL OTHER THERAPEUTIC PRODUCTS [Concomitant]
     Dosage: UNK
     Route: 042
     Dates: start: 20090112, end: 20090114
  51. VITAMINS [Concomitant]
     Dosage: UNK
     Route: 042
     Dates: start: 20090112, end: 20090118
  52. ALL OTHER THERAPEUTIC PRODUCTS [Concomitant]
     Dosage: UNK
     Dates: start: 20081202, end: 20090118

REACTIONS (1)
  - RESPIRATORY DISTRESS [None]
